FAERS Safety Report 9202831 (Version 1)
Quarter: 2013Q2

REPORT INFORMATION
  Report Type: Spontaneous
  Country: BR (occurrence: BR)
  Receive Date: 20130401
  Receipt Date: 20130401
  Transmission Date: 20140414
  Serious: Yes (Other)
  Sender: FDA-Public Use
  Company Number: BR-AMGEN-BRASP2013015588

PATIENT
  Age: 43 Year
  Sex: Male
  Weight: 97 kg

DRUGS (4)
  1. ENBREL [Suspect]
     Indication: PSORIASIS
     Dosage: 50 MG, ONCE WEEKLY
     Route: 058
     Dates: start: 201101
  2. ENBREL [Suspect]
     Dosage: 50 MG, 2X/WEEK
     Route: 058
  3. ENBREL [Suspect]
     Dosage: 50 MG, WEEKLY
     Route: 058
     Dates: start: 201205
  4. GLIFAGE [Concomitant]
     Indication: PRODUCT USED FOR UNKNOWN INDICATION
     Dosage: 500 UNK, UNK

REACTIONS (3)
  - Glucose tolerance impaired [Unknown]
  - Diabetes mellitus [Unknown]
  - Psoriasis [Unknown]
